FAERS Safety Report 13978411 (Version 4)
Quarter: 2018Q1

REPORT INFORMATION
  Report Type: Spontaneous
  Country: DE (occurrence: DE)
  Receive Date: 20170915
  Receipt Date: 20180223
  Transmission Date: 20180508
  Serious: Yes (Life-Threatening)
  Sender: FDA-Public Use
  Company Number: DE-GUERBET-DE-20170120

PATIENT
  Age: 80 Year
  Sex: Male
  Weight: 70 kg

DRUGS (3)
  1. GD-DTPA [Suspect]
     Active Substance: GADOPENTETATE DIMEGLUMINE
     Indication: NUCLEAR MAGNETIC RESONANCE IMAGING
     Route: 065
     Dates: start: 20170215, end: 20170215
  2. DOTAREM [Suspect]
     Active Substance: GADOTERATE MEGLUMINE
     Indication: NUCLEAR MAGNETIC RESONANCE IMAGING
     Route: 065
     Dates: start: 20170411, end: 20170411
  3. MULTIHANCE [Suspect]
     Active Substance: GADOBENATE DIMEGLUMINE
     Indication: MAGNETIC RESONANCE CHOLANGIOPANCREATOGRAPHY
     Route: 065
     Dates: start: 20170725, end: 20170725

REACTIONS (5)
  - Fall [Unknown]
  - Fall [Unknown]
  - Contrast media reaction [Recovering/Resolving]
  - Liver function test abnormal [Not Recovered/Not Resolved]
  - Metal poisoning [Not Recovered/Not Resolved]

NARRATIVE: CASE EVENT DATE: 2017
